FAERS Safety Report 8404204-2 (Version None)
Quarter: 2012Q2

REPORT INFORMATION
  Report Type: 
  Country: None (occurrence: None)
  Receive Date: 20120601
  Receipt Date: 20120521
  Transmission Date: 20120825
  Serious: Yes (Other)
  Sender: FDA-Public Use
  Company Number: GB-MYLANLABS-2012S1010851

PATIENT
  Age: 51 Year
  Sex: Female

DRUGS (3)
  1. LACOSAMIDE [Interacting]
     Indication: PARTIAL SEIZURES
     Dosage: 100MG DAILY
     Route: 065
  2. LEVETIRACETAM [Concomitant]
     Indication: PARTIAL SEIZURES
     Dosage: 2000MG DAILY
     Route: 065
  3. VALPROIC ACID [Suspect]
     Indication: PARTIAL SEIZURES
     Dosage: 1700MG DAILY
     Route: 065

REACTIONS (2)
  - DRUG INTERACTION [None]
  - TREMOR [None]
